FAERS Safety Report 8804200 (Version 1)
Quarter: 2012Q4

REPORT INFORMATION
  Report Type: 
  Country: BR (occurrence: BR)
  Receive Date: 20120924
  Receipt Date: 20120924
  Transmission Date: 20130627
  Serious: Yes (Death, Hospitalization)
  Sender: FDA-Public Use
  Company Number: BR-SANOFI-AVENTIS-2012SA063736

PATIENT
  Age: 88 Year
  Sex: Male
  Weight: 65 kg

DRUGS (5)
  1. APIDRA OPTISET [Suspect]
     Indication: DIABETES MELLITUS
     Dosage: received 5ml instead of 5 IU
     Route: 065
     Dates: start: 20120831, end: 20120831
  2. UNSPECIFIED INGREDIENT [Suspect]
     Indication: DEVICE THERAPY
     Dates: start: 20120831, end: 20120831
  3. CARVEDILOL [Concomitant]
     Indication: CARDIAC DISORDER NOS
     Route: 048
  4. SUSTRATE [Concomitant]
     Indication: CARDIAC DISORDER NOS
     Dosage: 2-3 tablets daily
     Route: 048
  5. LANTUS SOLOSTAR [Concomitant]
     Indication: TYPE 2 DIABETES MELLITUS
     Dates: start: 20120830

REACTIONS (6)
  - Pneumonia [Fatal]
  - Blood pressure increased [Recovering/Resolving]
  - Accidental overdose [Unknown]
  - Hypoglycaemic unconsciousness [Recovering/Resolving]
  - Hypoglycaemia [Recovering/Resolving]
  - Erythema [Recovering/Resolving]
